FAERS Safety Report 13688137 (Version 5)
Quarter: 2018Q3

REPORT INFORMATION
  Report Type: Spontaneous
  Country: US (occurrence: US)
  Receive Date: 20170626
  Receipt Date: 20180917
  Transmission Date: 20181010
  Serious: No
  Sender: FDA-Public Use
  Company Number: US-PFIZER INC-2017276014

PATIENT
  Age: 81 Year
  Sex: Female
  Weight: 61 kg

DRUGS (2)
  1. XELJANZ XR [Suspect]
     Active Substance: TOFACITINIB CITRATE
     Indication: RHEUMATOID ARTHRITIS
     Dosage: 11 MG, UNK
  2. OSTEO BI?FLEX [Concomitant]
     Active Substance: CHONDROITIN SULFATE A\GLUCOSAMINE
     Indication: BONE PAIN
     Dosage: UNK

REACTIONS (5)
  - Abdominal pain upper [Unknown]
  - Weight increased [Unknown]
  - Dizziness [Unknown]
  - Memory impairment [Unknown]
  - Asthenia [Unknown]
